FAERS Safety Report 15819789 (Version 1)
Quarter: 2019Q1

REPORT INFORMATION
  Report Type: Spontaneous
  Country: CN (occurrence: CN)
  Receive Date: 20190114
  Receipt Date: 20190114
  Transmission Date: 20190417
  Serious: Yes (Other)
  Sender: FDA-Public Use
  Company Number: CN-BAXTER-2019BAX000329

PATIENT
  Age: 27 Year
  Sex: Female
  Weight: 46 kg

DRUGS (7)
  1. 0.9% SODIUM CHLORIDE INJECTION [Suspect]
     Active Substance: SODIUM CHLORIDE
     Indication: FLUID REPLACEMENT
     Route: 041
     Dates: start: 20181120
  2. OXYGEN. [Suspect]
     Active Substance: OXYGEN
     Indication: ADVERSE EVENT
     Dosage: CENTRAL ASPIRATION
     Route: 055
     Dates: start: 20181119
  3. 20% GLUCOSE INJECTION 500ML [Suspect]
     Active Substance: DEXTROSE MONOHYDRATE
     Indication: DRUG THERAPY
     Route: 041
     Dates: start: 20181120
  4. MEDIUM AND LONG CHAIN FAT EMULSION INJECTION (C8-24) [Suspect]
     Active Substance: GLYCERIN\MEDIUM-CHAIN TRIGLYCERIDES\PHOSPHOLIPID\SOYBEAN OIL
     Indication: NUTRITIONAL SUPPLEMENTATION
     Route: 041
     Dates: start: 20181119, end: 20181119
  5. PROMETHAZINE HYDROCHLORIDE. [Suspect]
     Active Substance: PROMETHAZINE HYDROCHLORIDE
     Indication: ADVERSE EVENT
     Route: 030
     Dates: start: 20181119
  6. VITAMINE C [Suspect]
     Active Substance: ASCORBIC ACID
     Indication: DRUG THERAPY
     Route: 065
     Dates: start: 20181120
  7. CALCIUM GLUCONATE. [Suspect]
     Active Substance: CALCIUM GLUCONATE
     Indication: DRUG THERAPY
     Route: 065
     Dates: start: 20181120

REACTIONS (12)
  - Vomiting [Recovering/Resolving]
  - Hypoaesthesia [Recovering/Resolving]
  - Chest discomfort [Recovering/Resolving]
  - Nausea [Recovering/Resolving]
  - Vomiting [Recovering/Resolving]
  - Flushing [Recovering/Resolving]
  - Haematemesis [Recovering/Resolving]
  - Palpitations [Recovering/Resolving]
  - Dizziness [Recovering/Resolving]
  - Exposure during pregnancy [Unknown]
  - Headache [Recovering/Resolving]
  - Dyspnoea [Recovering/Resolving]

NARRATIVE: CASE EVENT DATE: 20181119
